FAERS Safety Report 24240122 (Version 1)
Quarter: 2024Q3

REPORT INFORMATION
  Report Type: Spontaneous
  Country: BE (occurrence: BE)
  Receive Date: 20240822
  Receipt Date: 20240822
  Transmission Date: 20241017
  Serious: Yes (Life-Threatening, Hospitalization)
  Sender: TEVA
  Company Number: None

PATIENT
  Age: 84 Year
  Sex: Female
  Weight: 67 kg

DRUGS (9)
  1. BISOPROLOL [Interacting]
     Active Substance: BISOPROLOL\BISOPROLOL FUMARATE
     Indication: Product used for unknown indication
     Dosage: BISOPROLOL FUMARATE, 1 X DAILY 2 PIECES
     Route: 048
  2. KISQALI [Suspect]
     Active Substance: RIBOCICLIB
     Indication: Breast cancer metastatic
     Dosage: 3 TABLETS 1X/DAY
     Route: 048
     Dates: start: 20240627, end: 20240718
  3. LANOXIN [Interacting]
     Active Substance: DIGOXIN
     Indication: Product used for unknown indication
     Dosage: 1 X PER DAY 1 PIECE
     Route: 048
  4. STEOVIT FORTE [Concomitant]
     Indication: Product used for unknown indication
     Dosage: STEOVIT FORTE LEMON 1000 MG/800 I.U. CHEWABLE TABLETS, 1 X PER DAY 1 PIECE
     Route: 048
  5. BUMETANIDE [Interacting]
     Active Substance: BUMETANIDE
     Indication: Product used for unknown indication
     Dosage: 1 PIECE ONCE PER DAY
     Route: 048
  6. NADROPARIN CALCIUM [Concomitant]
     Active Substance: NADROPARIN CALCIUM
     Indication: Product used for unknown indication
     Dosage: ANTI-XA/0,6 ML, SUBCUTANEOUS; 1 X DAILY 1 PIECE
     Route: 058
  7. ATROVENT [Concomitant]
     Active Substance: IPRATROPIUM BROMIDE
     Indication: Product used for unknown indication
     Dosage: 20  G/DOSE METERED DOSE AEROSOL SOLUTION; INHALATION; 4 X DAILY 2 DOSES
     Route: 055
  8. PHENPROCOUMON [Concomitant]
     Active Substance: PHENPROCOUMON
     Indication: Product used for unknown indication
     Dosage: ACCORDING TO SCHEDULE
     Route: 048
  9. LETROZOLE [Concomitant]
     Active Substance: LETROZOLE
     Indication: Product used for unknown indication
     Dosage: 1 X DAILY 1 PIECE
     Route: 048

REACTIONS (5)
  - Bradycardia [Recovered/Resolved]
  - Toxicity to various agents [Recovered/Resolved]
  - Drug interaction [Recovered/Resolved]
  - Drug level increased [Recovered/Resolved]
  - Electrocardiogram QT prolonged [Recovered/Resolved]

NARRATIVE: CASE EVENT DATE: 20240718
